FAERS Safety Report 25109888 (Version 2)
Quarter: 2025Q3

REPORT INFORMATION
  Report Type: Spontaneous
  Country: EU (occurrence: EU)
  Receive Date: 20250324
  Receipt Date: 20250809
  Transmission Date: 20251021
  Serious: Yes (Other)
  Sender: ALEXION PHARMACEUTICALS
  Company Number: None

PATIENT
  Age: 72 Year
  Sex: Female
  Weight: 90 kg

DRUGS (3)
  1. FASLODEX [Suspect]
     Active Substance: FULVESTRANT
     Indication: Breast cancer metastatic
     Dosage: 2 X 250MG/TAG  ALLE 4 WOCHEN
     Dates: start: 2016
  2. FASLODEX [Suspect]
     Active Substance: FULVESTRANT
     Indication: Palliative care
  3. PALBOCICLIB [Concomitant]
     Active Substance: PALBOCICLIB
     Indication: Breast cancer metastatic
     Route: 065

REACTIONS (2)
  - Skin necrosis [Recovered/Resolved]
  - Soft tissue inflammation [Recovered/Resolved]

NARRATIVE: CASE EVENT DATE: 20240930
